FAERS Safety Report 7011771-2 (Version None)
Quarter: 2010Q3

REPORT INFORMATION
  Report Type: 
  Country: None (occurrence: None)
  Receive Date: 20100923
  Receipt Date: 20090515
  Transmission Date: 20110219
  Serious: No
  Sender: FDA-Public Use
  Company Number: US-WYE-H09379609

PATIENT
  Sex: Female

DRUGS (2)
  1. PREMARIN [Suspect]
     Indication: PRODUCT USED FOR UNKNOWN INDICATION
     Dosage: .45 MG
     Route: 048
     Dates: end: 20090101
  2. PREMARIN [Suspect]
     Dosage: .3MG
     Route: 048
     Dates: start: 20090101

REACTIONS (1)
  - BREAST CALCIFICATIONS [None]
